FAERS Safety Report 6531956-9 (Version None)
Quarter: 2010Q1

REPORT INFORMATION
  Report Type: 
  Country: None (occurrence: None)
  Receive Date: 20100107
  Receipt Date: 20100107
  Transmission Date: 20100710
  Serious: Yes (Other)
  Sender: FDA-Public Use
  Company Number: None

PATIENT
  Age: 14 Year
  Sex: Male
  Weight: 73.4827 kg

DRUGS (2)
  1. SOTRET [Suspect]
     Indication: ACNE CYSTIC
     Dosage: 30MG QD PO
     Route: 048
     Dates: start: 20091101, end: 20091130
  2. CLARAVIS [Suspect]
     Dosage: 30MG BID PO
     Route: 048
     Dates: start: 20091201, end: 20091231

REACTIONS (4)
  - AVULSION FRACTURE [None]
  - ILIUM FRACTURE [None]
  - INJURY [None]
  - LIGAMENT RUPTURE [None]
